FAERS Safety Report 18013641 (Version 8)
Quarter: 2022Q1

REPORT INFORMATION
  Report Type: Spontaneous
  Country: US (occurrence: US)
  Receive Date: 20200713
  Receipt Date: 20220215
  Transmission Date: 20220423
  Serious: Yes (Other)
  Sender: FDA-Public Use
  Company Number: US-GILEAD-2020-0481303

PATIENT
  Age: 53 Year
  Sex: Male
  Weight: 90.703 kg

DRUGS (64)
  1. COMPLERA [Suspect]
     Active Substance: EMTRICITABINE\RILPIVIRINE HYDROCHLORIDE\TENOFOVIR DISOPROXIL FUMARATE
     Indication: HIV infection
     Dosage: UNK
     Route: 048
     Dates: start: 20180108, end: 20181012
  2. COMPLERA [Suspect]
     Active Substance: EMTRICITABINE\RILPIVIRINE HYDROCHLORIDE\TENOFOVIR DISOPROXIL FUMARATE
     Dosage: UNK
     Route: 065
     Dates: start: 20180831, end: 20181012
  3. TRUVADA [Suspect]
     Active Substance: EMTRICITABINE\TENOFOVIR DISOPROXIL FUMARATE
     Indication: HIV infection
     Dosage: UNK
     Route: 048
     Dates: start: 201409, end: 201710
  4. TRUVADA [Suspect]
     Active Substance: EMTRICITABINE\TENOFOVIR DISOPROXIL FUMARATE
     Dosage: UNK
     Route: 048
     Dates: start: 2007, end: 20160607
  5. TRUVADA [Suspect]
     Active Substance: EMTRICITABINE\TENOFOVIR DISOPROXIL FUMARATE
     Dosage: UNK
     Route: 048
     Dates: start: 20170317, end: 20180108
  6. TRUVADA [Suspect]
     Active Substance: EMTRICITABINE\TENOFOVIR DISOPROXIL FUMARATE
     Dosage: UNK
     Route: 048
     Dates: start: 2007, end: 201801
  7. TRUVADA [Suspect]
     Active Substance: EMTRICITABINE\TENOFOVIR DISOPROXIL FUMARATE
     Dosage: UNK
     Route: 048
     Dates: start: 20151021, end: 20160607
  8. TRUVADA [Suspect]
     Active Substance: EMTRICITABINE\TENOFOVIR DISOPROXIL FUMARATE
     Dosage: UNK
     Route: 048
     Dates: start: 20061228, end: 200702
  9. TRUVADA [Suspect]
     Active Substance: EMTRICITABINE\TENOFOVIR DISOPROXIL FUMARATE
     Dosage: UNK
     Route: 048
     Dates: start: 20070213, end: 20131213
  10. TRUVADA [Suspect]
     Active Substance: EMTRICITABINE\TENOFOVIR DISOPROXIL FUMARATE
     Dosage: UNK
     Route: 048
     Dates: start: 20131213, end: 20141218
  11. TRUVADA [Suspect]
     Active Substance: EMTRICITABINE\TENOFOVIR DISOPROXIL FUMARATE
     Dosage: UNK
     Route: 048
     Dates: start: 20141218, end: 20151021
  12. TRUVADA [Suspect]
     Active Substance: EMTRICITABINE\TENOFOVIR DISOPROXIL FUMARATE
     Dosage: UNK
     Route: 048
     Dates: start: 20151021, end: 20160607
  13. TRUVADA [Suspect]
     Active Substance: EMTRICITABINE\TENOFOVIR DISOPROXIL FUMARATE
     Dosage: UNK
     Route: 048
     Dates: start: 20170317, end: 20180108
  14. VIREAD [Suspect]
     Active Substance: TENOFOVIR DISOPROXIL FUMARATE
     Indication: HIV infection
     Dosage: UNK
     Route: 065
     Dates: start: 20040715, end: 20061228
  15. DESCOVY [Concomitant]
     Active Substance: EMTRICITABINE\TENOFOVIR ALAFENAMIDE FUMARATE
  16. ODEFSEY [Concomitant]
     Active Substance: EMTRICITABINE\RILPIVIRINE HYDROCHLORIDE\TENOFOVIR ALAFENAMIDE FUMARATE
  17. EDURANT [Concomitant]
     Active Substance: RILPIVIRINE HYDROCHLORIDE
  18. EPIVIR [Concomitant]
     Active Substance: LAMIVUDINE
  19. ISENTRESS [Concomitant]
     Active Substance: RALTEGRAVIR POTASSIUM
  20. KALETRA [Concomitant]
     Active Substance: LOPINAVIR\RITONAVIR
  21. NORVIR [Concomitant]
     Active Substance: RITONAVIR
  22. PIFELTRO [Concomitant]
     Active Substance: DORAVIRINE
  23. PREZISTA [Concomitant]
     Active Substance: DARUNAVIR ETHANOLATE
  24. SELZENTRY [Concomitant]
     Active Substance: MARAVIROC
  25. TIVICAY [Concomitant]
     Active Substance: DOLUTEGRAVIR SODIUM
  26. VIRACEPT [Concomitant]
     Active Substance: NELFINAVIR MESYLATE
  27. ISONIAZID [Concomitant]
     Active Substance: ISONIAZID
  28. ACETAMINOPHEN [Concomitant]
     Active Substance: ACETAMINOPHEN
  29. ACYCLOVIR [Concomitant]
     Active Substance: ACYCLOVIR
  30. ASPIRIN [Concomitant]
     Active Substance: ASPIRIN
  31. OMEPRAZOLE [Concomitant]
     Active Substance: OMEPRAZOLE
  32. PENICILLIN [Concomitant]
     Active Substance: PENICILLIN
  33. TETRACYCLINE [Concomitant]
     Active Substance: TETRACYCLINE
  34. BACTRIM [Concomitant]
     Active Substance: SULFAMETHOXAZOLE\TRIMETHOPRIM
  35. DOXYCYCLINE [Concomitant]
     Active Substance: DOXYCYCLINE
  36. MELOXICAM [Concomitant]
     Active Substance: MELOXICAM
  37. ANDROGEL [Concomitant]
     Active Substance: TESTOSTERONE
  38. AXIRON [Concomitant]
     Active Substance: TESTOSTERONE
  39. TESTOSTERONE [Concomitant]
     Active Substance: TESTOSTERONE
  40. CELEBREX [Concomitant]
     Active Substance: CELECOXIB
  41. DICLOFENAC [Concomitant]
     Active Substance: DICLOFENAC
  42. FLUOROURACIL [Concomitant]
     Active Substance: FLUOROURACIL
  43. LORAZEPAM [Concomitant]
     Active Substance: LORAZEPAM
  44. SUSTIVA [Concomitant]
     Active Substance: EFAVIRENZ
  45. ESCITALOPRAM [Concomitant]
     Active Substance: ESCITALOPRAM OXALATE
  46. AMBIEN [Concomitant]
     Active Substance: ZOLPIDEM TARTRATE
  47. AZITHROMYCIN [Concomitant]
     Active Substance: AZITHROMYCIN
  48. DOCUSATE [Concomitant]
     Active Substance: DOCUSATE
  49. ERYTHROMYCIN [Concomitant]
     Active Substance: ERYTHROMYCIN
  50. METRONIDAZOLE [Concomitant]
     Active Substance: METRONIDAZOLE
  51. LEVOFLOXACIN [Concomitant]
     Active Substance: LEVOFLOXACIN
  52. NYSTATIN [Concomitant]
     Active Substance: NYSTATIN
  53. RISPERIDONE [Concomitant]
     Active Substance: RISPERIDONE
  54. HALOPERIDOL [Concomitant]
     Active Substance: HALOPERIDOL
  55. OLANZAPINE [Concomitant]
     Active Substance: OLANZAPINE
  56. BENZTROPINE [Concomitant]
     Active Substance: BENZTROPINE
  57. BENADRYL [Concomitant]
     Active Substance: DIPHENHYDRAMINE HYDROCHLORIDE
  58. CRIXIVAN [Concomitant]
     Active Substance: INDINAVIR SULFATE
  59. VIRAMUNE [Concomitant]
     Active Substance: NEVIRAPINE
  60. ZIAGEN [Concomitant]
     Active Substance: ABACAVIR SULFATE
  61. ZERIT [Concomitant]
     Active Substance: STAVUDINE
  62. BETAMETHASONE [Concomitant]
     Active Substance: BETAMETHASONE
  63. LOPERAMIDE [Concomitant]
     Active Substance: LOPERAMIDE
  64. NASONEX [Concomitant]
     Active Substance: MOMETASONE FUROATE

REACTIONS (15)
  - Rib fracture [Recovered/Resolved]
  - Chronic kidney disease [Not Recovered/Not Resolved]
  - Multiple fractures [Unknown]
  - Osteoporosis [Not Recovered/Not Resolved]
  - Foot fracture [Recovered/Resolved]
  - Lumbar vertebral fracture [Not Recovered/Not Resolved]
  - Myelitis [Recovered/Resolved]
  - Virologic failure [Unknown]
  - Bone density decreased [Unknown]
  - Emotional distress [Unknown]
  - Mobility decreased [Not Recovered/Not Resolved]
  - Exercise tolerance decreased [Not Recovered/Not Resolved]
  - Pain [Unknown]
  - Spinal osteoarthritis [Unknown]
  - Osteoarthritis [Unknown]

NARRATIVE: CASE EVENT DATE: 20150717
